FAERS Safety Report 6731698-0 (Version None)
Quarter: 2010Q2

REPORT INFORMATION
  Report Type: 
  Country: None (occurrence: None)
  Receive Date: 20100519
  Receipt Date: 20100511
  Transmission Date: 20101027
  Serious: Yes (Hospitalization)
  Sender: FDA-Public Use
  Company Number: JP-JNJFOC-20100505898

PATIENT
  Age: 39 Year
  Sex: Male

DRUGS (1)
  1. CRAVIT [Suspect]
     Indication: TOOTHACHE
     Route: 048

REACTIONS (2)
  - ABASIA [None]
  - ANAPHYLACTIC SHOCK [None]
